FAERS Safety Report 16384050 (Version 1)
Quarter: 2019Q2

REPORT INFORMATION
  Report Type: Spontaneous
  Country: DE (occurrence: DE)
  Receive Date: 20190603
  Receipt Date: 20190603
  Transmission Date: 20190711
  Serious: Yes (Other)
  Sender: FDA-Public Use
  Company Number: DE-MYLANLABS-2019M1051073

PATIENT
  Age: 59 Year
  Sex: Male

DRUGS (3)
  1. PRAVIDEL (BROMOCRIPTINE MESYLATE) [Suspect]
     Active Substance: BROMOCRIPTINE MESYLATE
     Indication: ACROMEGALY
     Dosage: UNK
     Route: 048
     Dates: start: 1978, end: 1998
  2. PRAVIDEL (BROMOCRIPTINE MESYLATE) [Suspect]
     Active Substance: BROMOCRIPTINE MESYLATE
     Dosage: UNK
     Route: 048
     Dates: start: 1998
  3. L-THYROXIN                         /00068002/ [Concomitant]
     Active Substance: LEVOTHYROXINE SODIUM
     Dosage: UNK
     Route: 065

REACTIONS (6)
  - Depression [Not Recovered/Not Resolved]
  - Arthralgia [Not Recovered/Not Resolved]
  - Diarrhoea [Not Recovered/Not Resolved]
  - Muscular weakness [Not Recovered/Not Resolved]
  - Gait disturbance [Not Recovered/Not Resolved]
  - Paraesthesia [Not Recovered/Not Resolved]

NARRATIVE: CASE EVENT DATE: 1998
